FAERS Safety Report 20120218 (Version 1)
Quarter: 2021Q4

REPORT INFORMATION
  Report Type: Spontaneous
  Country: US (occurrence: None)
  Receive Date: 20211126
  Receipt Date: 20211126
  Transmission Date: 20220303
  Serious: Yes (Other)
  Sender: FDA-Public Use
  Company Number: None

PATIENT
  Age: 17 Year
  Sex: Male
  Weight: 57.8 kg

DRUGS (6)
  1. REGEN-COV [Suspect]
     Active Substance: CASIRIVIMAB\IMDEVIMAB
     Indication: COVID-19
  2. CANASA [Concomitant]
     Active Substance: MESALAMINE
  3. UROCIT-K [Concomitant]
     Active Substance: POTASSIUM CITRATE
  4. FLOMAX [Concomitant]
     Active Substance: TAMSULOSIN HYDROCHLORIDE
  5. CLARITIN [Concomitant]
     Active Substance: LORATADINE
  6. DIMETAPP [Concomitant]
     Active Substance: BROMPHENIRAMINE\PSEUDOEPHEDRINE

REACTIONS (6)
  - Dyspnoea [None]
  - Panic reaction [None]
  - Erythema [None]
  - Cough [None]
  - Oxygen saturation decreased [None]
  - Infusion related reaction [None]

NARRATIVE: CASE EVENT DATE: 20211118
